FAERS Safety Report 5282463-5 (Version None)
Quarter: 2007Q1

REPORT INFORMATION
  Report Type: 
  Country: None (occurrence: None)
  Receive Date: 20070326
  Receipt Date: 20070314
  Transmission Date: 20070707
  Serious: Yes (Death)
  Sender: FDA-Public Use
  Company Number: 238290

PATIENT
  Age: 55 Year
  Sex: Female

DRUGS (1)
  1. RITUXAN [Suspect]
     Indication: DERMATOMYOSITIS
     Dosage: 1000 MG, INTRAVENOUS
     Route: 042
     Dates: start: 20070308

REACTIONS (1)
  - ARRHYTHMIA [None]
